FAERS Safety Report 4413421-8 (Version None)
Quarter: 2004Q2

REPORT INFORMATION
  Report Type: 
  Country: None (occurrence: None)
  Receive Date: 20040630
  Receipt Date: 20040304
  Transmission Date: 20050107
  Serious: No
  Sender: FDA-Public Use
  Company Number: 04P-163-0252388

PATIENT
  Age: 75 Year
  Sex: Female
  Weight: 57.1532 kg

DRUGS (9)
  1. HUMIRA [Suspect]
     Indication: RHEUMATOID ARTHRITIS
     Dosage: 40 MG, 1 IN 2 WK, SUBCUTANEOUS
     Route: 058
     Dates: start: 20031101
  2. METHOTREXATE [Concomitant]
  3. LEXAPRO [Concomitant]
  4. FOLIC ACID [Concomitant]
  5. ENALAPRIL MALEATE [Concomitant]
  6. HYDROCODONE [Concomitant]
  7. CARVEDILOL [Concomitant]
  8. CELECOXIB [Concomitant]
  9. FEOGEN [Concomitant]

REACTIONS (1)
  - PARAESTHESIA [None]
